FAERS Safety Report 20119957 (Version 1)
Quarter: 2021Q4

REPORT INFORMATION
  Report Type: Spontaneous
  Country: US (occurrence: US)
  Receive Date: 20211126
  Receipt Date: 20211126
  Transmission Date: 20220303
  Serious: Yes (Death)
  Sender: FDA-Public Use
  Company Number: US-WYE-H02029008

PATIENT
  Age: 50 Year
  Sex: Female

DRUGS (3)
  1. ADVIL [Suspect]
     Active Substance: IBUPROFEN
     Indication: Suicide attempt
     Dosage: UNK
     Route: 048
     Dates: start: 2006, end: 2006
  2. FUROSEMIDE [Suspect]
     Active Substance: FUROSEMIDE
     Indication: Suicide attempt
     Dosage: UNK
     Route: 048
     Dates: start: 2006, end: 2006
  3. DIGOXIN [Suspect]
     Active Substance: DIGOXIN
     Indication: Suicide attempt
     Dosage: UNK
     Route: 048
     Dates: start: 2006, end: 2006

REACTIONS (2)
  - Intentional overdose [Fatal]
  - Toxicity to various agents [Fatal]

NARRATIVE: CASE EVENT DATE: 20060101
